FAERS Safety Report 13273952 (Version 1)
Quarter: 2017Q1

REPORT INFORMATION
  Report Type: Spontaneous
  Country: JP (occurrence: JP)
  Receive Date: 20170227
  Receipt Date: 20170227
  Transmission Date: 20170428
  Serious: Yes (Death, Hospitalization)
  Sender: FDA-Public Use
  Company Number: JP-UNICHEM LABORATORIES LIMITED-UCM201702-000050

PATIENT
  Age: 7 Year
  Sex: Female
  Weight: 15.2 kg

DRUGS (5)
  1. CLONAZEPAM. [Concomitant]
     Active Substance: CLONAZEPAM
  2. DIVALPROEX SODIUM. [Concomitant]
     Active Substance: DIVALPROEX SODIUM
     Indication: EPILEPSY
  3. TOPIRAMATE. [Concomitant]
     Active Substance: TOPIRAMATE
     Indication: EPILEPSY
  4. LAMOTRIGINE. [Suspect]
     Active Substance: LAMOTRIGINE
     Indication: EPILEPSY
  5. LAMOTRIGINE. [Suspect]
     Active Substance: LAMOTRIGINE

REACTIONS (6)
  - Myocarditis [Fatal]
  - Herpes virus infection [Not Recovered/Not Resolved]
  - Cardiac failure chronic [Unknown]
  - Cardiogenic shock [Not Recovered/Not Resolved]
  - Thyroid disorder [Fatal]
  - Drug reaction with eosinophilia and systemic symptoms [Not Recovered/Not Resolved]
